FAERS Safety Report 7375849-6 (Version None)
Quarter: 2011Q1

REPORT INFORMATION
  Report Type: 
  Country: None (occurrence: None)
  Receive Date: 20110325
  Receipt Date: 20110318
  Transmission Date: 20110831
  Serious: Yes (Hospitalization)
  Sender: FDA-Public Use
  Company Number: A0911230B

PATIENT
  Age: 67 Year
  Sex: Female

DRUGS (6)
  1. CALCIUM CARBONATE [Concomitant]
  2. MAGNESIUM HYDROXIDE [Concomitant]
  3. PAZOPANIB [Suspect]
     Indication: NON-SMALL CELL LUNG CANCER
     Dosage: 400MG PER DAY
     Route: 048
     Dates: start: 20110111
  4. NORCO [Concomitant]
  5. REGLAN [Concomitant]
  6. BISACODYL [Concomitant]

REACTIONS (1)
  - PNEUMONIA [None]
